FAERS Safety Report 21309142 (Version 2)
Quarter: 2022Q3

REPORT INFORMATION
  Report Type: Spontaneous
  Country: US (occurrence: US)
  Receive Date: 20220908
  Receipt Date: 20220909
  Transmission Date: 20221027
  Serious: No
  Sender: FDA-Public Use
  Company Number: US-BIOGEN-2016BI00246874

PATIENT
  Sex: Female

DRUGS (2)
  1. TYSABRI [Suspect]
     Active Substance: NATALIZUMAB
     Indication: Multiple sclerosis
     Dosage: INFUSED OVER 1 HOUR
     Route: 050
     Dates: start: 20110607
  2. TYSABRI [Suspect]
     Active Substance: NATALIZUMAB
     Route: 050
     Dates: start: 20220109

REACTIONS (6)
  - Urinary retention [Unknown]
  - Genital hypoaesthesia [Unknown]
  - Multiple sclerosis [Unknown]
  - Back pain [Unknown]
  - Tremor [Unknown]
  - Muscle spasms [Unknown]
